FAERS Safety Report 10264177 (Version 1)
Quarter: 2014Q2

REPORT INFORMATION
  Report Type: Spontaneous
  Country: US (occurrence: None)
  Receive Date: 20140623
  Receipt Date: 20140623
  Transmission Date: 20141212
  Serious: Yes (Life-Threatening, Hospitalization, Disabling, Other)
  Sender: FDA-Public Use
  Company Number: None

PATIENT
  Age: 49 Year
  Sex: Female
  Weight: 76.2 kg

DRUGS (1)
  1. CARBAMAZEPINE [Suspect]
     Indication: TRIGEMINAL NEURALGIA
     Dosage: 1 PILL, TWICE DAILY, TAKEN BY MOUTH
     Route: 048
     Dates: start: 20110210, end: 20110224

REACTIONS (8)
  - Drug reaction with eosinophilia and systemic symptoms [None]
  - Treatment failure [None]
  - Dehydration [None]
  - Diarrhoea [None]
  - Aphagia [None]
  - Hepatic failure [None]
  - Abdominal pain upper [None]
  - Thyroid disorder [None]
